FAERS Safety Report 6894137-5 (Version None)
Quarter: 2010Q3

REPORT INFORMATION
  Report Type: 
  Country: None (occurrence: None)
  Receive Date: 20100802
  Receipt Date: 20100726
  Transmission Date: 20110219
  Serious: Yes (Other)
  Sender: FDA-Public Use
  Company Number: US-JNJFOC-20091009104

PATIENT
  Sex: Female
  Weight: 77.11 kg

DRUGS (13)
  1. LEVAQUIN [Suspect]
     Indication: BRONCHITIS
     Route: 048
     Dates: start: 20090401, end: 20090407
  2. LEVAQUIN [Suspect]
     Indication: PLEURISY
     Route: 048
     Dates: start: 20090401, end: 20090407
  3. HYDROXYZINE HYDROCHLORIDE [Concomitant]
     Indication: PRODUCT USED FOR UNKNOWN INDICATION
     Dosage: 30 REFILL
     Route: 065
  4. HYDROXYZINE HYDROCHLORIDE [Concomitant]
     Dosage: 60 REFILLS
     Route: 065
  5. FLEXERIL [Concomitant]
     Indication: PRODUCT USED FOR UNKNOWN INDICATION
     Route: 065
  6. HYDROCODONE BITARTRATE [Concomitant]
     Indication: PRODUCT USED FOR UNKNOWN INDICATION
     Dosage: 7.5/750
     Route: 065
  7. PREDNISONE [Concomitant]
     Indication: PAIN
     Dosage: 1 TABLET AS IN SIG NOTE: 3 TABS FOR 3 DAYS, 2 TABS FOR 3 DAYS, 1 TABS FOR 3 DAYS, 1/2 TAB FOR 3 DAYS
  8. PREDNISONE [Concomitant]
     Dosage: 1 TABLET AS IN SIG NOTE: 3 TABS FOR 3 DAYS, 2 TABS FOR 3 DAYS, 1 TABS FOR 3 DAYS, 1/2 TAB FOR 3 DAYS
  9. PREDNISONE [Concomitant]
     Dosage: 1 TABLET AS IN SIG NOTE: 3 TABS FOR 3 DAYS, 2 TABS FOR 3 DAYS, 1 TABS FOR 3 DAYS
  10. PREDNISONE [Concomitant]
     Dosage: 1 TABLET AS IN SIG NOTE: 3 TABS FOR 3 DAYS, 2 TABS FOR 3 DAYS, 1 TABS FOR 3 DAYS, 1/2 TAB FOR 3 DAYS
  11. LORTAB [Concomitant]
     Indication: PRODUCT USED FOR UNKNOWN INDICATION
     Route: 065
  12. TUMS E-X [Concomitant]
     Indication: PRODUCT USED FOR UNKNOWN INDICATION
     Route: 065
  13. CELEBREX [Concomitant]
     Indication: PRODUCT USED FOR UNKNOWN INDICATION
     Route: 065

REACTIONS (25)
  - BLISTER [None]
  - CONSTIPATION [None]
  - DECREASED APPETITE [None]
  - DERMATITIS CONTACT [None]
  - DIARRHOEA [None]
  - DIZZINESS [None]
  - DRY SKIN [None]
  - DYSPEPSIA [None]
  - DYSPHONIA [None]
  - FATIGUE [None]
  - GASTROOESOPHAGEAL REFLUX DISEASE [None]
  - HEADACHE [None]
  - HYPERSENSITIVITY [None]
  - JOINT SWELLING [None]
  - NAUSEA [None]
  - NIGHT SWEATS [None]
  - OROPHARYNGEAL PAIN [None]
  - PAIN [None]
  - PYREXIA [None]
  - RASH [None]
  - SCAB [None]
  - SLEEP DISORDER [None]
  - TINNITUS [None]
  - VOMITING [None]
  - WEIGHT INCREASED [None]
